FAERS Safety Report 9550506 (Version 5)
Quarter: 2014Q3

REPORT INFORMATION
  Report Type: Report from Study
  Country: US (occurrence: US)
  Receive Date: 20130924
  Receipt Date: 20140827
  Transmission Date: 20150326
  Serious: Yes (Other)
  Sender: FDA-Public Use
  Company Number: US-SANOFI-AVENTIS-2013SA025669

PATIENT
  Age: 47 Year
  Sex: Female
  Weight: 72 kg

DRUGS (10)
  1. PENICILLIN NOS [Suspect]
     Active Substance: PENICILLIN
  2. AUBAGIO [Suspect]
     Active Substance: TERIFLUNOMIDE
     Indication: MULTIPLE SCLEROSIS
     Route: 048
     Dates: start: 20130214, end: 20130924
  3. HYDROCODONE [Concomitant]
     Active Substance: HYDROCODONE
     Indication: TOOTHACHE
  4. ACETAMINOPHEN. [Suspect]
     Active Substance: ACETAMINOPHEN
  5. TOPAMAX [Concomitant]
     Active Substance: TOPIRAMATE
     Indication: CEREBROVASCULAR ACCIDENT
  6. PRILOSEC [Concomitant]
     Active Substance: OMEPRAZOLE MAGNESIUM
  7. AUBAGIO [Suspect]
     Active Substance: TERIFLUNOMIDE
     Indication: MULTIPLE SCLEROSIS
     Route: 048
     Dates: start: 20131024
  8. AUBAGIO [Suspect]
     Active Substance: TERIFLUNOMIDE
     Indication: MULTIPLE SCLEROSIS
     Route: 048
     Dates: start: 20130214, end: 20130924
  9. CODEINE [Suspect]
     Active Substance: CODEINE
     Indication: TOOTHACHE
     Dates: start: 20130424
  10. AUBAGIO [Suspect]
     Active Substance: TERIFLUNOMIDE
     Indication: MULTIPLE SCLEROSIS
     Route: 048
     Dates: start: 20130214, end: 20130924

REACTIONS (18)
  - Weight increased [Not Recovered/Not Resolved]
  - Abdominal discomfort [Not Recovered/Not Resolved]
  - Pain in extremity [Not Recovered/Not Resolved]
  - Gastrointestinal disorder [Unknown]
  - Hypertension [Recovered/Resolved]
  - Micturition urgency [Not Recovered/Not Resolved]
  - Faecal incontinence [Not Recovered/Not Resolved]
  - Paraesthesia [Recovered/Resolved]
  - Pain [Recovered/Resolved]
  - Diarrhoea [Recovered/Resolved]
  - Defaecation urgency [Not Recovered/Not Resolved]
  - Therapeutic response changed [Unknown]
  - Alopecia [Not Recovered/Not Resolved]
  - Multiple sclerosis relapse [Not Recovered/Not Resolved]
  - Burning sensation [Unknown]
  - Faeces soft [Not Recovered/Not Resolved]
  - Hypoaesthesia [Recovered/Resolved]
  - Toothache [Not Recovered/Not Resolved]

NARRATIVE: CASE EVENT DATE: 201302
